FAERS Safety Report 21959260 (Version 1)
Quarter: 2023Q1

REPORT INFORMATION
  Report Type: Spontaneous
  Country: DE (occurrence: DE)
  Receive Date: 20230206
  Receipt Date: 20230206
  Transmission Date: 20230418
  Serious: Yes (Other)
  Sender: FDA-Public Use
  Company Number: None

PATIENT
  Age: 52 Year
  Sex: Female
  Weight: 64 kg

DRUGS (3)
  1. BEVACIZUMAB [Suspect]
     Active Substance: BEVACIZUMAB
     Indication: Ovarian cancer
     Dosage: 960 MG
     Dates: start: 20221213
  2. CARBOPLATIN [Concomitant]
     Active Substance: CARBOPLATIN
     Indication: Ovarian cancer
     Dosage: 577 MG
     Dates: start: 20221213
  3. PACLITAXEL [Concomitant]
     Active Substance: PACLITAXEL
     Dosage: 308 MG
     Dates: start: 20221213

REACTIONS (1)
  - Thrombosis [Not Recovered/Not Resolved]
